FAERS Safety Report 4381005-6 (Version None)
Quarter: 2004Q2

REPORT INFORMATION
  Report Type: 
  Country: None (occurrence: None)
  Receive Date: 20040614
  Receipt Date: 20040601
  Transmission Date: 20050107
  Serious: Yes (Other)
  Sender: FDA-Public Use
  Company Number: HQWYE159402JUN04

PATIENT
  Age: 61 Year
  Sex: Female

DRUGS (5)
  1. PROPRANOLOL HCL [Suspect]
     Indication: ATRIAL FIBRILLATION
     Dosage: SEE IMAGE
     Route: 048
     Dates: start: 20031125, end: 20040229
  2. PROPRANOLOL HCL [Suspect]
     Indication: ATRIAL FIBRILLATION
     Dosage: SEE IMAGE
     Route: 048
     Dates: start: 20040301, end: 20040304
  3. APOCARD (FLECAINIDE ACETATE, ) [Suspect]
     Indication: ATRIAL FIBRILLATION
     Dosage: 200 MG 1X PER 1 DAY
     Route: 048
     Dates: start: 20040301, end: 20040304
  4. SINTROM [Concomitant]
  5. FAMOTIDINE [Concomitant]

REACTIONS (5)
  - BRADYCARDIA [None]
  - CARDIAC FAILURE [None]
  - CHEST PAIN [None]
  - DYSPNOEA [None]
  - OEDEMA [None]
